FAERS Safety Report 9001127 (Version 1)
Quarter: 2013Q1

REPORT INFORMATION
  Report Type: Spontaneous
  Country: US (occurrence: None)
  Receive Date: 20130102
  Receipt Date: 20130102
  Transmission Date: 20140127
  Serious: Yes (Hospitalization)
  Sender: FDA-Public Use
  Company Number: None

PATIENT
  Sex: Female
  Weight: 49.5 kg

DRUGS (2)
  1. DOCETAXEL (TAXOTERE) [Suspect]
  2. IRINOTECAN [Suspect]

REACTIONS (11)
  - Nausea [None]
  - Vomiting [None]
  - Diarrhoea [None]
  - Asthenia [None]
  - Dehydration [None]
  - Neutropenia [None]
  - Electrolyte imbalance [None]
  - Blood culture positive [None]
  - Pneumonia klebsiella [None]
  - Pneumonia streptococcal [None]
  - Haemoglobin decreased [None]
